FAERS Safety Report 6208908-1 (Version None)
Quarter: 2009Q2

REPORT INFORMATION
  Report Type: 
  Country: None (occurrence: None)
  Receive Date: 20090529
  Receipt Date: 20090519
  Transmission Date: 20091009
  Serious: Yes (Other)
  Sender: FDA-Public Use
  Company Number: B0576392A

PATIENT
  Age: 40 Year
  Sex: Female

DRUGS (11)
  1. PAROXETINE HCL [Suspect]
     Indication: DEPRESSION
  2. FENTANYL [Suspect]
     Dosage: 100UG PER DAY
     Route: 042
  3. THIOPENTAL SODIUM [Concomitant]
     Route: 042
  4. VECURONIUM BROMIDE [Concomitant]
     Dosage: 8MG PER DAY
     Route: 042
  5. SEVOFLURANE [Concomitant]
  6. NITROUS OXIDE [Concomitant]
  7. OXYGEN [Concomitant]
  8. NITROGLYCERIN [Concomitant]
     Route: 042
  9. NEOSTIGMINE [Concomitant]
  10. ATROPIN [Concomitant]
  11. DICLOFENAC SODIUM [Concomitant]
     Route: 030

REACTIONS (6)
  - CONFUSIONAL STATE [None]
  - DRUG INTERACTION [None]
  - MYOCLONUS [None]
  - NYSTAGMUS [None]
  - PUPILS UNEQUAL [None]
  - SEROTONIN SYNDROME [None]
